FAERS Safety Report 25077798 (Version 1)
Quarter: 2025Q1

REPORT INFORMATION
  Report Type: Spontaneous
  Country: US (occurrence: US)
  Receive Date: 20250314
  Receipt Date: 20250314
  Transmission Date: 20250409
  Serious: Yes (Hospitalization)
  Sender: PACIRA
  Company Number: US-ORG100016242-2025000088

PATIENT
  Age: 12 Year
  Sex: Male
  Weight: 51.3 kg

DRUGS (3)
  1. EXPAREL [Suspect]
     Active Substance: BUPIVACAINE
     Indication: Spinal fusion surgery
     Route: 050
     Dates: start: 20250307, end: 20250307
  2. BUPIVACAINE [Suspect]
     Active Substance: BUPIVACAINE
     Indication: Spinal fusion surgery
     Route: 050
     Dates: start: 20250307, end: 20250307
  3. SALINE [Suspect]
     Active Substance: SODIUM CHLORIDE
     Indication: Spinal fusion surgery
     Route: 050
     Dates: start: 20250307, end: 20250307

REACTIONS (1)
  - Spinal cord compression [Unknown]

NARRATIVE: CASE EVENT DATE: 20250307
